FAERS Safety Report 20049492 (Version 1)
Quarter: 2021Q4

REPORT INFORMATION
  Report Type: Spontaneous
  Country: BR (occurrence: BR)
  Receive Date: 20211109
  Receipt Date: 20211109
  Transmission Date: 20220303
  Serious: Yes (Hospitalization)
  Sender: FDA-Public Use
  Company Number: BR-NOVOPROD-862699

PATIENT
  Age: 59 Year
  Sex: Male

DRUGS (6)
  1. FIASP [Suspect]
     Active Substance: INSULIN ASPART
     Indication: Product used for unknown indication
     Dosage: 8 IU (PER MEAL)
     Route: 065
  2. METFORMIN [Concomitant]
     Active Substance: METFORMIN HYDROCHLORIDE
     Indication: Product used for unknown indication
     Dosage: 500 MG, BID
     Route: 065
  3. EMPAGLIFLOZIN\LINAGLIPTIN [Concomitant]
     Active Substance: EMPAGLIFLOZIN\LINAGLIPTIN
     Indication: Product used for unknown indication
     Dosage: 25/5MG
     Route: 065
  4. ROSUVASTATIN/EZETIMIBE TEVA [Concomitant]
     Indication: Product used for unknown indication
     Dosage: 20/10MG
     Route: 065
  5. TELMISARTAN AND AMLODIPINE [Concomitant]
     Active Substance: AMLODIPINE BESYLATE\TELMISARTAN
     Indication: Product used for unknown indication
     Dosage: 80/5MG
     Route: 065
  6. GLARGINE BIOCON [Concomitant]
     Indication: Product used for unknown indication
     Dosage: 24 IU
     Route: 065

REACTIONS (3)
  - COVID-19 [Unknown]
  - Hypoglycaemia [Unknown]
  - Glycosylated haemoglobin increased [Unknown]

NARRATIVE: CASE EVENT DATE: 20210201
